FAERS Safety Report 6693770-3 (Version None)
Quarter: 2010Q2

REPORT INFORMATION
  Report Type: 
  Country: None (occurrence: None)
  Receive Date: 20100421
  Receipt Date: 20100406
  Transmission Date: 20101027
  Serious: Yes (Other)
  Sender: FDA-Public Use
  Company Number: 20100162

PATIENT
  Age: 88 Year
  Sex: Male

DRUGS (1)
  1. PAMIDRONATE DISODIUM [Suspect]
     Dosage: INTRAVENOUS
     Route: 042

REACTIONS (5)
  - ACTINOMYCOSIS [None]
  - JAW FRACTURE [None]
  - OSTEITIS [None]
  - OSTEONECROSIS OF JAW [None]
  - PATHOLOGICAL FRACTURE [None]
